FAERS Safety Report 4996200-2 (Version None)
Quarter: 2006Q2

REPORT INFORMATION
  Report Type: 
  Country: None (occurrence: None)
  Receive Date: 20060504
  Receipt Date: 20060420
  Transmission Date: 20061013
  Serious: Yes (Hospitalization)
  Sender: FDA-Public Use
  Company Number: B0421200A

PATIENT
  Age: 5 Year
  Sex: Female

DRUGS (9)
  1. ALKERAN [Suspect]
     Indication: STEM CELL TRANSPLANT
     Dosage: 70 MG/M2/ D
     Dates: start: 20031114
  2. BUSULPHAN        (BASULFAN) [Suspect]
     Indication: STEM CELL TRANSPLANT
     Dosage: 5 MG/KG UNKNOWN / ORAL
     Route: 048
     Dates: start: 20031114
  3. RADIOTHERAPY           (RADIOTHERAPY) [Suspect]
     Indication: STEM CELL TRANSPLANT
     Dosage: UNKNOWN
     Route: 065
     Dates: start: 20031114
  4. VINCRISTINE SULFATE [Concomitant]
  5. DOXORUBICIN HCL [Concomitant]
  6. CYCLOPHOSPHAMIDE [Concomitant]
  7. COLASPASE [Concomitant]
  8. CYCLOSPORINE [Concomitant]
  9. METHOTREXATE [Concomitant]

REACTIONS (8)
  - ASCITES [None]
  - FIBRIN D DIMER INCREASED [None]
  - HEPATOMEGALY [None]
  - PROTEIN C DECREASED [None]
  - THERAPY NON-RESPONDER [None]
  - THROMBOCYTOPENIA [None]
  - VENOOCCLUSIVE LIVER DISEASE [None]
  - WEIGHT INCREASED [None]
